FAERS Safety Report 6524920-7 (Version None)
Quarter: 2010Q1

REPORT INFORMATION
  Report Type: 
  Country: None (occurrence: None)
  Receive Date: 20100104
  Receipt Date: 20091221
  Transmission Date: 20100710
  Serious: Yes (Hospitalization)
  Sender: FDA-Public Use
  Company Number: SK-PFIZER INC-2009300537

PATIENT
  Age: 90 Year
  Sex: Male
  Weight: 58.2 kg

DRUGS (12)
  1. BLINDED *NO SUBJECT DRUG [Suspect]
     Indication: PROSTATE CANCER
     Dosage: 37.5 MG, 1X/DAY
     Route: 048
     Dates: start: 20090921
  2. BLINDED *PLACEBO [Suspect]
     Indication: PROSTATE CANCER
     Dosage: 37.5 MG, 1X/DAY
     Route: 048
     Dates: start: 20090921
  3. BLINDED SUNITINIB MALATE [Suspect]
     Indication: PROSTATE CANCER
     Dosage: 37.5 MG, 1X/DAY
     Route: 048
     Dates: start: 20090921
  4. PREDNISONE [Suspect]
     Indication: PROSTATE CANCER
     Dosage: 10 MG, 2X/DAY
     Route: 048
     Dates: start: 20090921
  5. TRIMETAZIDINE [Concomitant]
     Dosage: UNK
     Dates: start: 20010101
  6. MOLSIDOMINE [Concomitant]
     Dosage: UNK
     Dates: start: 20010101
  7. AMLODIPINE BESILATE [Concomitant]
     Dosage: UNK
     Dates: start: 20010101
  8. RAMIPRIL [Concomitant]
     Dosage: UNK
     Dates: start: 20010101
  9. ACETYLSALICYLIC ACID [Concomitant]
     Dosage: UNK
     Dates: start: 20010101
  10. ZOLEDRONIC ACID [Concomitant]
     Dosage: UNK
     Dates: start: 20080101
  11. CALCIUM CARBONATE [Concomitant]
     Dosage: UNK
     Dates: start: 20080401
  12. ATORVASTATIN CALCIUM [Concomitant]
     Dosage: UNK
     Dates: start: 20090924

REACTIONS (1)
  - GASTRIC ULCER [None]
